FAERS Safety Report 9043716 (Version 1)
Quarter: 2013Q1

REPORT INFORMATION
  Report Type: Spontaneous
  Country: US (occurrence: US)
  Receive Date: 20130129
  Receipt Date: 20130129
  Transmission Date: 20140127
  Serious: No
  Sender: FDA-Public Use
  Company Number: US-ABBOTT-12P-163-0911866-00

PATIENT
  Age: 32 None
  Sex: Female

DRUGS (5)
  1. HUMIRA 40 MG/0.8 ML PEN [Suspect]
     Indication: PSORIASIS
  2. HUMIRA 40 MG/0.8 ML PEN [Suspect]
     Dates: start: 201110, end: 201112
  3. HUMIRA 40 MG/0.8 ML PEN [Suspect]
     Dates: start: 201201
  4. TACLONEX [Concomitant]
     Indication: PSORIASIS
     Dosage: APPLIED TO THE SCALP
  5. CLOBEX [Concomitant]
     Indication: PSORIASIS

REACTIONS (9)
  - White blood cell count increased [Recovering/Resolving]
  - Cough [Not Recovered/Not Resolved]
  - Pruritus [Not Recovered/Not Resolved]
  - Drug ineffective [Unknown]
  - Psoriasis [Unknown]
  - Blood glucose increased [Unknown]
  - White blood cell count increased [Recovering/Resolving]
  - White blood cell count increased [Not Recovered/Not Resolved]
  - White blood cell count increased [Recovering/Resolving]
